FAERS Safety Report 5804169-3 (Version None)
Quarter: 2008Q3

REPORT INFORMATION
  Report Type: 
  Country: None (occurrence: None)
  Receive Date: 20080707
  Receipt Date: 20080625
  Transmission Date: 20090109
  Serious: Yes (Other)
  Sender: FDA-Public Use
  Company Number: 2008AP001362

PATIENT
  Age: 75 Year
  Sex: Female

DRUGS (9)
  1. METRONIDAZOLE [Suspect]
     Indication: DIVERTICULITIS
     Dosage: 500 MG; QID PO
     Route: 048
     Dates: start: 20080424, end: 20080502
  2. CIPROFLOXACIN HYDROCHLORIDE [Suspect]
     Indication: DIVERTICULITIS
     Dosage: 500 MG; TAB; PO; BID
     Route: 048
     Dates: start: 20080425, end: 20080501
  3. AMLODIPINE [Concomitant]
  4. METOPROLOL TARTRATE [Concomitant]
  5. HYDROCHLOROTHIAZIDE [Concomitant]
  6. ATORVASTATIN CALCIUM [Concomitant]
  7. EZETIMIBE [Concomitant]
  8. LEVOBUNOLOL HYDROCHLORIDE (LEVOBUNOLOL HYDROCHLORIDE) [Concomitant]
  9. CALCIUM (CALCIUM) [Concomitant]

REACTIONS (10)
  - BALANCE DISORDER [None]
  - CHROMATURIA [None]
  - CONSTIPATION [None]
  - DIARRHOEA [None]
  - DIZZINESS [None]
  - DYSGEUSIA [None]
  - ERUCTATION [None]
  - HAEMORRHOIDS [None]
  - NAUSEA [None]
  - RETCHING [None]
